FAERS Safety Report 9442956 (Version 2)
Quarter: 2013Q3

REPORT INFORMATION
  Report Type: Spontaneous
  Country: NL (occurrence: NL)
  Receive Date: 20130806
  Receipt Date: 20130808
  Transmission Date: 20140515
  Serious: Yes (Hospitalization)
  Sender: FDA-Public Use
  Company Number: NL-PFIZER INC-2013227161

PATIENT
  Age: 84 Year
  Sex: Female
  Weight: 66 kg

DRUGS (8)
  1. MIRTAZAPINE [Suspect]
     Indication: DEPRESSION
     Dosage: 30 MG, 1X/DAY
     Dates: start: 2006
  2. SERTRALINE [Interacting]
     Indication: DEPRESSION
     Dosage: 50 MG, 1X/DAY
     Dates: start: 20130723, end: 20130726
  3. OXAZEPAM [Concomitant]
     Dosage: 10 MG, 1X/DAY
  4. ACETYLSALICYLIC ACID [Concomitant]
     Dosage: 80 MG, 1X/DAY
  5. THIAMINE [Concomitant]
     Dosage: 50 MG, 1X/DAY
  6. HYDROCHLOROTHIAZIDE [Concomitant]
     Dosage: 12.5 MG, 1X/DAY
  7. METOPROLOL [Concomitant]
     Dosage: 50 MG, 1X/DAY
  8. PANTOZOL [Concomitant]
     Dosage: 40 MG, 1X/DAY

REACTIONS (2)
  - Hyponatraemia [Recovered/Resolved]
  - Drug interaction [Recovered/Resolved]
